FAERS Safety Report 18943985 (Version 1)
Quarter: 2021Q1

REPORT INFORMATION
  Report Type: Spontaneous
  Country: US (occurrence: US)
  Receive Date: 20210226
  Receipt Date: 20210226
  Transmission Date: 20210420
  Serious: Yes (Hospitalization, Other)
  Sender: FDA-Public Use
  Company Number: US-GLAND PHARMA LIMITED-2021US001400

PATIENT
  Age: 6 Year
  Sex: Female

DRUGS (2)
  1. CARBOPLATIN. [Suspect]
     Active Substance: CARBOPLATIN
     Indication: GLIOMA
     Dosage: 560 MG/M2, MONTHLY, 8TH DOSE
     Route: 065
  2. CARBOPLATIN. [Suspect]
     Active Substance: CARBOPLATIN
     Dosage: UNK, 9TH DOSE
     Route: 065

REACTIONS (5)
  - Hydronephrosis [Unknown]
  - Haematuria [Recovered/Resolved]
  - Vomiting [Unknown]
  - Dehydration [Unknown]
  - Nausea [Unknown]
